FAERS Safety Report 16336794 (Version 1)
Quarter: 2019Q2

REPORT INFORMATION
  Report Type: Spontaneous
  Country: US (occurrence: US)
  Receive Date: 20190521
  Receipt Date: 20190521
  Transmission Date: 20190711
  Serious: No
  Sender: FDA-Public Use
  Company Number: US-HTU-2018US017807

PATIENT
  Sex: Female

DRUGS (1)
  1. VALCHLOR [Suspect]
     Active Substance: MECHLORETHAMINE
     Indication: CUTANEOUS T-CELL LYMPHOMA
     Dosage: UNK, QD
     Route: 061
     Dates: start: 20181004

REACTIONS (4)
  - Application site discolouration [Not Recovered/Not Resolved]
  - Fungal infection [Recovered/Resolved]
  - Skin discolouration [Unknown]
  - Skin hypopigmentation [Not Recovered/Not Resolved]
